FAERS Safety Report 7268330-6 (Version None)
Quarter: 2011Q1

REPORT INFORMATION
  Report Type: 
  Country: None (occurrence: None)
  Receive Date: 20110201
  Receipt Date: 20110124
  Transmission Date: 20110831
  Serious: Yes (Death)
  Sender: FDA-Public Use
  Company Number: MX-GENZYME-POMP-1001281

PATIENT
  Sex: Male

DRUGS (1)
  1. MYOZYME [Suspect]
     Indication: GLYCOGEN STORAGE DISEASE TYPE II
     Dosage: 100 MG, Q2W
     Route: 042

REACTIONS (3)
  - HYPERTROPHIC CARDIOMYOPATHY [None]
  - DISEASE PROGRESSION [None]
  - BRONCHOPNEUMONIA [None]
